FAERS Safety Report 16106914 (Version 1)
Quarter: 2019Q1

REPORT INFORMATION
  Report Type: Spontaneous
  Country: IT (occurrence: IT)
  Receive Date: 20190322
  Receipt Date: 20190322
  Transmission Date: 20190418
  Serious: Yes (Other)
  Sender: FDA-Public Use
  Company Number: IT-ALLERGAN-1911768US

PATIENT
  Sex: Female

DRUGS (5)
  1. CRESTOR [Concomitant]
     Active Substance: ROSUVASTATIN CALCIUM
  2. NEBIVOLOL HCL - BP [Suspect]
     Active Substance: NEBIVOLOL
     Indication: ARRHYTHMIA PROPHYLAXIS
     Dosage: 5 MG, QD
     Route: 048
  3. RANIBEN [Concomitant]
  4. ALDACTONE [Suspect]
     Active Substance: SPIRONOLACTONE
     Indication: HYPERTENSION
     Dosage: 25 MG, QD
     Route: 048
  5. CARDIRENE [Concomitant]
     Active Substance: ASPIRIN DL-LYSINE

REACTIONS (4)
  - Arrhythmia [Recovering/Resolving]
  - Off label use [Unknown]
  - Therapy non-responder [Unknown]
  - Chest pain [Recovering/Resolving]

NARRATIVE: CASE EVENT DATE: 20181225
